FAERS Safety Report 8484659-8 (Version None)
Quarter: 2012Q3

REPORT INFORMATION
  Report Type: 
  Country: None (occurrence: None)
  Receive Date: 20120703
  Receipt Date: 20120402
  Transmission Date: 20120928
  Serious: No
  Sender: FDA-Public Use
  Company Number: US-TEVA-331665USA

PATIENT
  Age: 25 Year
  Sex: Female

DRUGS (1)
  1. NUVIGIL [Suspect]
     Indication: NARCOLEPSY
     Route: 048

REACTIONS (4)
  - PANIC REACTION [None]
  - CONFUSIONAL STATE [None]
  - AMNESIA [None]
  - ANXIETY [None]
